FAERS Safety Report 7244254-5 (Version None)
Quarter: 2011Q1

REPORT INFORMATION
  Report Type: 
  Country: None (occurrence: None)
  Receive Date: 20110118
  Receipt Date: 20110105
  Transmission Date: 20110831
  Serious: Yes (Death, Hospitalization)
  Sender: FDA-Public Use
  Company Number: 2009AP004497

PATIENT
  Age: 61 Year
  Sex: Male

DRUGS (5)
  1. CLOZAPINE [Suspect]
     Indication: SCHIZOPHRENIA, DISORGANISED TYPE
     Dosage: 300 MG;BID
  2. LAMOTRIGINE [Concomitant]
  3. OXYBUTYNIN [Suspect]
     Indication: SALIVARY HYPERSECRETION
     Dosage: 5 MG; BID
  4. FLURAZEPAM [Concomitant]
  5. PROCYCLIDINE (PROCYCLIDINE) [Suspect]
     Indication: SALIVARY HYPERSECRETION
     Dosage: 5 MG;BID

REACTIONS (6)
  - ABDOMINAL PAIN [None]
  - INTESTINAL OBSTRUCTION [None]
  - CONSTIPATION [None]
  - PNEUMONIA ASPIRATION [None]
  - BACTERAEMIA [None]
  - SEPSIS [None]
